FAERS Safety Report 7718708-9 (Version None)
Quarter: 2011Q3

REPORT INFORMATION
  Report Type: 
  Country: None (occurrence: None)
  Receive Date: 20110830
  Receipt Date: 20110818
  Transmission Date: 20111222
  Serious: Yes (Other)
  Sender: FDA-Public Use
  Company Number: CA-ELI_LILLY_AND_COMPANY-CA201108005769

PATIENT
  Sex: Male
  Weight: 105 kg

DRUGS (16)
  1. TEGRETOL [Concomitant]
  2. PROSCAR [Concomitant]
  3. NITROGLYCERIN [Concomitant]
  4. CLONAZEPAM [Concomitant]
  5. ZOPICLONE [Concomitant]
  6. ZYPREXA [Suspect]
     Dosage: 15 MG, EACH EVENING
  7. CARBAMAZEPINE [Concomitant]
  8. HYDROCHLOROTHIAZIDE [Concomitant]
  9. ZYPREXA [Suspect]
     Indication: BIPOLAR DISORDER
     Dosage: 10 MG, EACH EVENING
  10. LOXAPINE HCL [Concomitant]
  11. BENZTROPINE MESYLATE [Concomitant]
  12. CLOMIPRAMINE [Concomitant]
  13. ATIVAN [Concomitant]
  14. PERINDOPRIL ERBUMINE [Concomitant]
  15. SPIRONOLACTONE [Concomitant]
  16. PERINDOPRIL [Concomitant]

REACTIONS (13)
  - DIVERTICULITIS [None]
  - CATARACT [None]
  - TINEA INFECTION [None]
  - WEIGHT INCREASED [None]
  - DIABETES MELLITUS [None]
  - WOUND HAEMORRHAGE [None]
  - RENAL IMPAIRMENT [None]
  - EPISTAXIS [None]
  - BENIGN PROSTATIC HYPERPLASIA [None]
  - HYPOACUSIS [None]
  - HYPERLIPIDAEMIA [None]
  - ANAEMIA [None]
  - RECTAL HAEMORRHAGE [None]
